FAERS Safety Report 7334674-2 (Version None)
Quarter: 2011Q1

REPORT INFORMATION
  Report Type: 
  Country: None (occurrence: None)
  Receive Date: 20110307
  Receipt Date: 20101129
  Transmission Date: 20110831
  Serious: Yes (Other)
  Sender: FDA-Public Use
  Company Number: US-BAYER-2011-020020

PATIENT
  Sex: Female

DRUGS (4)
  1. OCELLA [Suspect]
     Dosage: UNK
     Route: 048
     Dates: start: 20070301, end: 20081001
  2. YAZ [Suspect]
     Dosage: UNK
     Route: 048
     Dates: start: 20070301, end: 20081001
  3. YASMIN [Suspect]
     Dosage: UNK
     Route: 048
     Dates: start: 20070301, end: 20081001
  4. GIANVI [Suspect]
     Dosage: UNK
     Route: 048
     Dates: start: 20070301, end: 20081001

REACTIONS (5)
  - INJURY [None]
  - DEPRESSION [None]
  - CEREBROVASCULAR ACCIDENT [None]
  - EMOTIONAL DISTRESS [None]
  - PAIN [None]
